FAERS Safety Report 7003708 (Version 3)
Quarter: 2018Q4

REPORT INFORMATION
  Report Type: Spontaneous
  Country: ZA (occurrence: ZA)
  Receive Date: 20090527
  Receipt Date: 20181008
  Transmission Date: 20190205
  Serious: Yes (Other)
  Sender: FDA-Public Use
  Company Number: ZA-PFIZER INC-2009214164

PATIENT
  Age: 4 Decade
  Sex: Female

DRUGS (1)
  1. ZITHROMAX [Suspect]
     Active Substance: AZITHROMYCIN DIHYDRATE
     Dosage: 2 G, SINGLE
     Route: 048
     Dates: start: 20090514, end: 20090514

REACTIONS (3)
  - Loss of consciousness [Unknown]
  - Feeling hot [Unknown]
  - Nausea [Unknown]

NARRATIVE: CASE EVENT DATE: 20090514
